FAERS Safety Report 12288025 (Version 1)
Quarter: 2016Q2

REPORT INFORMATION
  Report Type: Spontaneous
  Country: NO (occurrence: NO)
  Receive Date: 20160420
  Receipt Date: 20160420
  Transmission Date: 20160815
  Serious: Yes (Hospitalization, Other)
  Sender: FDA-Public Use
  Company Number: NO-PFIZER INC-2016220602

PATIENT
  Age: 72 Year
  Sex: Female
  Weight: 75 kg

DRUGS (13)
  1. AFIPRAN [Concomitant]
     Active Substance: METOCLOPRAMIDE HYDROCHLORIDE
     Indication: SURGERY
     Route: 051
     Dates: start: 20151210, end: 20151210
  2. LIPITOR [Concomitant]
     Active Substance: ATORVASTATIN CALCIUM
     Dosage: 20 MG, 1X/DAY
     Route: 048
  3. INSULATARD FLEXPEN [Concomitant]
     Active Substance: INSULIN HUMAN
     Dosage: 50 IU, ALTERNATE DAY
     Route: 058
  4. FENTANYL. [Concomitant]
     Active Substance: FENTANYL
     Indication: ANAESTHESIA PROCEDURE
     Route: 051
     Dates: start: 20151210, end: 20151210
  5. METYLTIONIN [Interacting]
     Active Substance: METHYLENE BLUE
     Indication: DIAGNOSTIC PROCEDURE
     Dosage: IN 500 MG GLUCOSE 50MG/ML
     Route: 051
     Dates: start: 20151210, end: 20151210
  6. ESMERON [Concomitant]
     Active Substance: ROCURONIUM BROMIDE
     Indication: ANAESTHESIA PROCEDURE
     Route: 051
     Dates: start: 20151210, end: 20151210
  7. EFEXOR DEPOT [Suspect]
     Active Substance: VENLAFAXINE HYDROCHLORIDE
     Dosage: 75 MG, 1X/DAY
     Route: 048
  8. COZAAR [Concomitant]
     Active Substance: LOSARTAN POTASSIUM
     Dosage: 50 MG, 1X/DAY
     Route: 048
  9. LIDOCAINE. [Concomitant]
     Active Substance: LIDOCAINE
     Indication: SURGERY
     Route: 051
     Dates: start: 20151210, end: 20151210
  10. TENORMIN [Concomitant]
     Active Substance: ATENOLOL
     Dosage: 100 MG, 1X/DAY
  11. SEROQUEL [Concomitant]
     Active Substance: QUETIAPINE FUMARATE
     Dosage: 25 MG, 1X/DAY
     Route: 048
  12. NEXIUM [Concomitant]
     Active Substance: ESOMEPRAZOLE MAGNESIUM
     Dosage: 40 MG, 1X/DAY
     Route: 048
  13. ONDANSETRON [Concomitant]
     Active Substance: ONDANSETRON
     Indication: SURGERY
     Dates: start: 20151210, end: 20151210

REACTIONS (5)
  - Laryngospasm [Recovered/Resolved]
  - Serotonin syndrome [Unknown]
  - Laryngeal oedema [Unknown]
  - Chromaturia [Recovered/Resolved]
  - Drug interaction [Unknown]

NARRATIVE: CASE EVENT DATE: 20151210
